FAERS Safety Report 6222915-4 (Version None)
Quarter: 2009Q2

REPORT INFORMATION
  Report Type: 
  Country: None (occurrence: None)
  Receive Date: 20090611
  Receipt Date: 20090608
  Transmission Date: 20091009
  Serious: Yes (Death, Life-Threatening, Hospitalization)
  Sender: FDA-Public Use
  Company Number: DE-AVENTIS-200911180DE

PATIENT
  Age: 67 Year
  Sex: Male
  Weight: 65 kg

DRUGS (5)
  1. TAXOTERE [Suspect]
     Route: 042
     Dates: start: 20081201, end: 20090330
  2. FORTECORTIN                        /00016001/ [Concomitant]
     Route: 048
  3. PAMIDRONATE DISODIUM [Concomitant]
     Route: 042
     Dates: start: 20081201, end: 20090330
  4. CORTICOSTEROIDS [Concomitant]
     Indication: DRUG USE FOR UNKNOWN INDICATION
     Dosage: DOSE: NOT REPORTED
  5. ALL OTHER THERAPEUTIC PRODUCTS [Concomitant]
     Indication: DRUG USE FOR UNKNOWN INDICATION
     Dosage: DOSE: NOT REPORTED

REACTIONS (3)
  - CARDIAC FAILURE [None]
  - DERMATITIS BULLOUS [None]
  - TOXIC EPIDERMAL NECROLYSIS [None]
